FAERS Safety Report 4268257-8 (Version None)
Quarter: 2004Q1

REPORT INFORMATION
  Report Type: 
  Country: None (occurrence: None)
  Receive Date: 20040109
  Receipt Date: 20031231
  Transmission Date: 20041129
  Serious: Yes (Hospitalization)
  Sender: FDA-Public Use
  Company Number: 2004000443

PATIENT
  Sex: Male

DRUGS (2)
  1. UNISOM [Suspect]
     Indication: INTENTIONAL OVERDOSE
     Dosage: 2 BOXES OF SLEEPGELS, ORAL
     Route: 048
     Dates: start: 20031231, end: 20031231
  2. ETHANOL (ETHANOL) [Suspect]
     Dosage: ORAL
     Route: 048
     Dates: start: 20031231, end: 20031231

REACTIONS (3)
  - AGGRESSION [None]
  - ALCOHOL USE [None]
  - LOSS OF CONSCIOUSNESS [None]
